FAERS Safety Report 19320173 (Version 1)
Quarter: 2021Q2

REPORT INFORMATION
  Report Type: Spontaneous
  Country: US (occurrence: US)
  Receive Date: 20210527
  Receipt Date: 20210527
  Transmission Date: 20210717
  Serious: Yes (Hospitalization)
  Sender: FDA-Public Use
  Company Number: US-ROCHE-2835586

PATIENT
  Age: 59 Year
  Sex: Male

DRUGS (16)
  1. ACTEMRA [Suspect]
     Active Substance: TOCILIZUMAB
     Indication: IMMUNOLOGY TEST ABNORMAL
     Dosage: 1 SYRINGE
     Route: 058
     Dates: start: 20210330
  2. ACETAMINOPHEN. [Concomitant]
     Active Substance: ACETAMINOPHEN
  3. ENALAPRIL [Concomitant]
     Active Substance: ENALAPRIL
  4. METHOTREXATE. [Concomitant]
     Active Substance: METHOTREXATE
  5. CARISOPRODOL. [Concomitant]
     Active Substance: CARISOPRODOL
  6. FAMOTIDINE. [Concomitant]
     Active Substance: FAMOTIDINE
  7. LOSARTAN POTASSIUM. [Concomitant]
     Active Substance: LOSARTAN POTASSIUM
  8. DICLOFENAC [Concomitant]
     Active Substance: DICLOFENAC
  9. PEG 3350 [Concomitant]
     Active Substance: POLYETHYLENE GLYCOL 3350
  10. PREDNISONE. [Concomitant]
     Active Substance: PREDNISONE
  11. GABAPENTIN. [Concomitant]
     Active Substance: GABAPENTIN
  12. NAPROSYN [Concomitant]
     Active Substance: NAPROXEN
  13. PANTOPRAZOLE [Concomitant]
     Active Substance: PANTOPRAZOLE
  14. ATORVASTATIN [Concomitant]
     Active Substance: ATORVASTATIN
  15. FOLIC ACID. [Concomitant]
     Active Substance: FOLIC ACID
  16. PLAQUENIL [Concomitant]
     Active Substance: HYDROXYCHLOROQUINE SULFATE

REACTIONS (2)
  - Chest pain [Unknown]
  - Off label use [Unknown]

NARRATIVE: CASE EVENT DATE: 20210519
